FAERS Safety Report 16769527 (Version 1)
Quarter: 2019Q3

REPORT INFORMATION
  Report Type: Spontaneous
  Country: CA (occurrence: CA)
  Receive Date: 20190903
  Receipt Date: 20190903
  Transmission Date: 20191005
  Serious: Yes (Hospitalization)
  Sender: FDA-Public Use
  Company Number: CA-CELLTRION INC.-2019CA021300

PATIENT

DRUGS (8)
  1. INFLECTRA [Suspect]
     Active Substance: INFLIXIMAB-DYYB
     Indication: CROHN^S DISEASE
     Dosage: 500 MG, AT 0 , 2 , 6, THEN EVERY 8 WEEKS
     Route: 042
     Dates: start: 20190425, end: 2019
  2. PREDNISONE. [Concomitant]
     Active Substance: PREDNISONE
     Dosage: 8 DF, TAPER BY 1 TAB WEEKLY
     Route: 048
     Dates: start: 20190328, end: 20190523
  3. IMODIUM [Concomitant]
     Active Substance: LOPERAMIDE HYDROCHLORIDE
     Dosage: 6DF, DAILY
     Route: 048
  4. INFLECTRA [Suspect]
     Active Substance: INFLIXIMAB-DYYB
     Dosage: 500 MG, AT 0 , 2 , 6, THEN EVERY 8 WEEKS
     Route: 042
     Dates: start: 20190620
  5. CHOLESTYRAMINE. [Concomitant]
     Active Substance: CHOLESTYRAMINE
     Dosage: 4 G, 4X/DAY IF NEEDED
  6. CODEINE [Concomitant]
     Active Substance: CODEINE
     Dosage: 15-30 MG, 3X/DAY, AS NEEDED
     Route: 065
  7. INFLECTRA [Suspect]
     Active Substance: INFLIXIMAB-DYYB
     Dosage: 500 MG, AT 0 , 2 , 6, THEN EVERY 8 WEEKS
     Route: 042
     Dates: start: 20190522
  8. POTASSIUM [Concomitant]
     Active Substance: POTASSIUM
     Dosage: UNK
     Route: 065

REACTIONS (9)
  - Nausea [Unknown]
  - Headache [Unknown]
  - Off label use [Unknown]
  - Vomiting [Unknown]
  - Hypovolaemia [Unknown]
  - Malaise [Unknown]
  - Crohn^s disease [Unknown]
  - Pharyngitis streptococcal [Unknown]
  - Blood electrolytes abnormal [Unknown]

NARRATIVE: CASE EVENT DATE: 20190425
